FAERS Safety Report 16563177 (Version 1)
Quarter: 2019Q3

REPORT INFORMATION
  Report Type: Spontaneous
  Country: GB (occurrence: GB)
  Receive Date: 20190711
  Receipt Date: 20190711
  Transmission Date: 20191004
  Serious: Yes (Life-Threatening, Hospitalization, Other)
  Sender: FDA-Public Use
  Company Number: GB-BAXTER-2019BAX013188

PATIENT
  Sex: Female
  Weight: 113.25 kg

DRUGS (2)
  1. BUPIVACAINE-CLARIS 5MG/ML SOLUTION FOR INJECTION [Suspect]
     Active Substance: BUPIVACAINE HYDROCHLORIDE
     Indication: INTENTIONAL OVERDOSE
     Route: 037
  2. BUPIVACAINE. [Suspect]
     Active Substance: BUPIVACAINE
     Indication: DRUG DEPENDENCE
     Route: 048

REACTIONS (8)
  - Dysarthria [Unknown]
  - Euphoric mood [Unknown]
  - Local anaesthetic systemic toxicity [Not Recovered/Not Resolved]
  - Cognitive disorder [Unknown]
  - Hypotonia [Unknown]
  - Somnolence [Unknown]
  - Slow speech [Unknown]
  - Cardiotoxicity [Unknown]
